FAERS Safety Report 4785332-X (Version None)
Quarter: 2005Q3

REPORT INFORMATION
  Report Type: 
  Country: None (occurrence: None)
  Receive Date: 20050929
  Receipt Date: 20050916
  Transmission Date: 20060218
  Serious: Yes (Disabling, Other)
  Sender: FDA-Public Use
  Company Number: 2005106281

PATIENT
  Age: 36 Year
  Sex: Male

DRUGS (4)
  1. SOLU-MEDROL [Suspect]
     Indication: VOGT-KOYANAGI-HARADA SYNDROME
     Dosage: 1000 MG (1 IN 1 D), INTRAVENOUS
     Route: 042
     Dates: start: 20040108, end: 20040110
  2. ROXATIDINE ACETATE HCL [Concomitant]
  3. SELBEX (TEPRENONE) [Concomitant]
  4. ALFACALCIDOL (ALFACALCIDOL) [Concomitant]

REACTIONS (6)
  - CONDITION AGGRAVATED [None]
  - OPHTHALMOLOGICAL EXAMINATION ABNORMAL [None]
  - RETINAL DETACHMENT [None]
  - RETINAL DISORDER [None]
  - THERAPY NON-RESPONDER [None]
  - VISUAL ACUITY REDUCED [None]
